FAERS Safety Report 8885216 (Version 2)
Quarter: 2012Q4

REPORT INFORMATION
  Report Type: 
  Country: US (occurrence: US)
  Receive Date: 20121102
  Receipt Date: 20121126
  Transmission Date: 20130627
  Serious: No
  Sender: FDA-Public Use
  Company Number: US-PFIZER INC-2012266950

PATIENT
  Age: 74 Year
  Sex: Female
  Weight: 122 kg

DRUGS (8)
  1. REVATIO [Suspect]
     Indication: PULMONARY HYPERTENSION
     Dosage: 20 mg, 3x/day
     Route: 048
     Dates: start: 201202
  2. REVATIO [Suspect]
     Dosage: 20 mg, five times a day
     Dates: start: 201210
  3. REVATIO [Suspect]
     Dosage: 20 mg, 6x/day
     Route: 048
     Dates: start: 20121004
  4. METOPROLOL [Concomitant]
     Indication: BLOOD PRESSURE HIGH
     Dosage: 12.5 mg, 1x/day
  5. CRANBERRY [Concomitant]
     Indication: PULMONARY HYPERTENSION
     Dosage: UNK, daily
  6. OMEPRAZOLE [Concomitant]
     Indication: GERD
     Dosage: 20 mg, 1x/day
  7. LASIX [Concomitant]
     Indication: EDEMA
     Dosage: 40 mg, 1x/day
  8. AMBRISENTAN [Concomitant]
     Dosage: UNK

REACTIONS (2)
  - Off label use [Unknown]
  - Dyspepsia [Recovered/Resolved]
